FAERS Safety Report 19686744 (Version 1)
Quarter: 2021Q3

REPORT INFORMATION
  Report Type: Spontaneous
  Country: CA (occurrence: CA)
  Receive Date: 20210811
  Receipt Date: 20210811
  Transmission Date: 20211014
  Serious: Yes (Hospitalization)
  Sender: FDA-Public Use
  Company Number: CA-009507513-2108CAN002277

PATIENT
  Age: 79 Year
  Sex: Female
  Weight: 93 kg

DRUGS (8)
  1. GLICLAZIDE [Concomitant]
     Active Substance: GLICLAZIDE
  2. ATORVASTATIN [Concomitant]
     Active Substance: ATORVASTATIN
  3. CALCIUM+VITAMIN D [Concomitant]
     Active Substance: CALCIUM\VITAMIN D
     Dosage: DOSAGE FORM NOT SPECIFIED
  4. VENLAFAXINE HYDROCHLORIDE. [Concomitant]
     Active Substance: VENLAFAXINE HYDROCHLORIDE
  5. DIGOXIN. [Concomitant]
     Active Substance: DIGOXIN
  6. ELIQUIS [Concomitant]
     Active Substance: APIXABAN
  7. BISOPROLOL [Concomitant]
     Active Substance: BISOPROLOL
  8. JANUVIA [Suspect]
     Active Substance: SITAGLIPTIN PHOSPHATE
     Dosage: 100MG, 1 EVERY 1 DAYS
     Route: 048

REACTIONS (4)
  - Angioedema [Recovered/Resolved]
  - Condition aggravated [Recovered/Resolved]
  - Aphasia [Recovered/Resolved]
  - Swollen tongue [Recovered/Resolved]
